FAERS Safety Report 20407219 (Version 1)
Quarter: 2022Q1

REPORT INFORMATION
  Report Type: Spontaneous
  Country: None (occurrence: GB)
  Receive Date: 20220131
  Receipt Date: 20220131
  Transmission Date: 20220423
  Serious: Yes (Other)
  Sender: FDA-Public Use
  Company Number: GB-B.Braun Medical Inc.-2124471

PATIENT
  Age: 54 Year
  Sex: Male

DRUGS (65)
  1. HEPARIN SODIUM IN DEXTROSE [Suspect]
     Active Substance: HEPARIN SODIUM
  2. ASPIRIN [Suspect]
     Active Substance: ASPIRIN
  3. CEFTRIAXONE [Suspect]
     Active Substance: CEFTRIAXONE
  4. ROCEPHIN [Suspect]
     Active Substance: CEFTRIAXONE SODIUM
  5. ALFENTANIL [Suspect]
     Active Substance: ALFENTANIL
  6. AMOXICILLIN [Suspect]
     Active Substance: AMOXICILLIN
  7. TRICLOSAN [Suspect]
     Active Substance: TRICLOSAN
  8. BACTROBAN [Suspect]
     Active Substance: MUPIROCIN\MUPIROCIN CALCIUM
  9. CALCIUM CHLORIDE [Suspect]
     Active Substance: CALCIUM CHLORIDE
  10. CALCIUM GLUCONATE [Suspect]
     Active Substance: CALCIUM GLUCONATE
  11. CANRENOIC ACID [Suspect]
     Active Substance: CANRENOIC ACID
  12. ENOXAPARIN SODIUM [Suspect]
     Active Substance: ENOXAPARIN SODIUM
  13. CHLORPHENIRAMINE MALEATE [Suspect]
     Active Substance: CHLORPHENIRAMINE MALEATE
  14. CHLORPHENIRAMINE MALEATE [Suspect]
     Active Substance: CHLORPHENIRAMINE MALEATE
  15. CIPROFLOXACIN HYDROCHLORIDE [Suspect]
     Active Substance: CIPROFLOXACIN HYDROCHLORIDE
  16. ANHYDROUS CITRIC ACID [Suspect]
     Active Substance: ANHYDROUS CITRIC ACID
  17. DALTEPARIN [Suspect]
     Active Substance: DALTEPARIN
  18. DOBUTAMINE [Suspect]
     Active Substance: DOBUTAMINE HYDROCHLORIDE
  19. ENOXAPARIN SODIUM [Suspect]
     Active Substance: ENOXAPARIN SODIUM
  20. SILVER SULFADIAZINE [Suspect]
     Active Substance: SILVER SULFADIAZINE
  21. CICLOPIROX 8% / FLUCONAZOLE 1% / TERBINAFINE HCL 1% [Suspect]
     Active Substance: CICLOPIROX\FLUCONAZOLE\TERBINAFINE
  22. FRAGMIN [Suspect]
     Active Substance: DALTEPARIN SODIUM
  23. FUROSEMIDE [Suspect]
     Active Substance: FUROSEMIDE
  24. HYDROCORTISONE [Suspect]
     Active Substance: HYDROCORTISONE
  25. ACTRAPID [Suspect]
     Active Substance: INSULIN HUMAN
  26. LACTULOSE [Suspect]
     Active Substance: LACTULOSE
  27. LANSOPRAZOLE [Suspect]
     Active Substance: LANSOPRAZOLE
  28. LORAZEPAM [Suspect]
     Active Substance: LORAZEPAM
  29. MAGNESIUM SULFATE [Suspect]
     Active Substance: MAGNESIUM SULFATE
  30. MUPIROCIN [Suspect]
     Active Substance: MUPIROCIN
  31. NOREPINEPHRINE [Suspect]
     Active Substance: NOREPINEPHRINE
  32. NOREPINEPHRINE [Suspect]
     Active Substance: NOREPINEPHRINE
  33. OMEPRAZOLE [Suspect]
     Active Substance: OMEPRAZOLE
  34. ACETAMINOPHEN [Suspect]
     Active Substance: ACETAMINOPHEN
  35. PHYTONADIONE [Suspect]
     Active Substance: PHYTONADIONE
  36. POTASSIUM CHLORIDE [Suspect]
     Active Substance: POTASSIUM CHLORIDE
  37. CANRENOATE POTASSIUM [Suspect]
     Active Substance: CANRENOATE POTASSIUM
  38. POTASSIUM PHOSPHATE, DIBASIC [Suspect]
     Active Substance: POTASSIUM PHOSPHATE, DIBASIC
  39. PROPOFOL [Suspect]
     Active Substance: PROPOFOL
  40. RIBOFLAVIN [Suspect]
     Active Substance: RIBOFLAVIN
  41. ALBUTEROL [Suspect]
     Active Substance: ALBUTEROL
  42. POTASSIUM CHLORIDE [Suspect]
     Active Substance: POTASSIUM CHLORIDE
  43. SIMVASTATIN [Suspect]
     Active Substance: SIMVASTATIN
  44. SODIUM BICARBONATE [Suspect]
     Active Substance: SODIUM BICARBONATE
  45. SODIUM CHLORIDE [Suspect]
     Active Substance: SODIUM CHLORIDE
  46. SILVER SULFADIAZINE [Suspect]
     Active Substance: SILVER SULFADIAZINE
  47. SULFADIAZINE [Suspect]
     Active Substance: SULFADIAZINE
  48. THIAMINE [Suspect]
     Active Substance: THIAMINE
  49. TINZAPARIN [Suspect]
     Active Substance: TINZAPARIN
  50. TRICLOSAN [Suspect]
     Active Substance: TRICLOSAN
  51. UNSPECIFIED INGREDIENT [Suspect]
     Active Substance: UNSPECIFIED INGREDIENT
  52. VITAMIN K [Suspect]
     Active Substance: PHYTONADIONE
  53. LANSOPRAZOLE [Suspect]
     Active Substance: LANSOPRAZOLE
  54. ASPIRIN [Concomitant]
     Active Substance: ASPIRIN
  55. AMOXICILLIN [Concomitant]
     Active Substance: AMOXICILLIN
  56. CIPROFLOXACIN [Concomitant]
     Active Substance: CIPROFLOXACIN
  57. AMOXICILLIN\CLAVULANATE POTASSIUM [Concomitant]
     Active Substance: AMOXICILLIN\CLAVULANATE POTASSIUM
  58. ERYTHROMYCIN [Concomitant]
     Active Substance: ERYTHROMYCIN
  59. Atrovent Iipratropium bromide [Concomitant]
  60. METOCLOPRAMIDE [Concomitant]
     Active Substance: METOCLOPRAMIDE
  61. MIDODRINE [Concomitant]
     Active Substance: MIDODRINE
  62. PANTOPRAZOLE [Concomitant]
     Active Substance: PANTOPRAZOLE
  63. PIPERACILLIN AND TAZOBACTAM [Concomitant]
     Active Substance: PIPERACILLIN SODIUM\TAZOBACTAM SODIUM
  64. VANCOMYCIN [Concomitant]
     Active Substance: VANCOMYCIN
  65. ZOPICLONE [Concomitant]
     Active Substance: ZOPICLONE

REACTIONS (2)
  - Toxic epidermal necrolysis [Unknown]
  - Drug hypersensitivity [Unknown]
